FAERS Safety Report 9154783 (Version 3)
Quarter: 2014Q2

REPORT INFORMATION
  Report Type: Spontaneous
  Country: US (occurrence: US)
  Receive Date: 20130311
  Receipt Date: 20140509
  Transmission Date: 20141212
  Serious: Yes (Hospitalization, Congenital Anomaly, Other)
  Sender: FDA-Public Use
  Company Number: US-PFIZER INC-2013080482

PATIENT
  Sex: Male

DRUGS (1)
  1. ZOLOFT [Suspect]
     Dosage: UNK
     Route: 064
     Dates: start: 1984

REACTIONS (8)
  - Maternal exposure during pregnancy [Unknown]
  - Microcephaly [Unknown]
  - Talipes [Unknown]
  - Epilepsy [Unknown]
  - Lennox-Gastaut syndrome [Unknown]
  - Mental retardation [Unknown]
  - Developmental delay [Unknown]
  - Abnormal behaviour [Unknown]
